FAERS Safety Report 24668767 (Version 2)
Quarter: 2024Q4

REPORT INFORMATION
  Report Type: Spontaneous
  Country: US (occurrence: US)
  Receive Date: 20241127
  Receipt Date: 20241128
  Transmission Date: 20250114
  Serious: Yes (Hospitalization, Other)
  Sender: Kenvue
  Company Number: None

PATIENT
  Age: 24 Year
  Sex: Male

DRUGS (2)
  1. MINOXIDIL [Suspect]
     Active Substance: MINOXIDIL
     Indication: Alopecia
     Dosage: ONE OUNCE OR 1500 MG
     Route: 048
  2. MINOXIDIL [Suspect]
     Active Substance: MINOXIDIL
     Indication: Accidental exposure to product

REACTIONS (3)
  - Acute kidney injury [Recovering/Resolving]
  - Accidental exposure to product [Unknown]
  - Accidental overdose [Unknown]
